FAERS Safety Report 7765718-1 (Version None)
Quarter: 2011Q3

REPORT INFORMATION
  Report Type: 
  Country: None (occurrence: None)
  Receive Date: 20110921
  Receipt Date: 20110913
  Transmission Date: 20111222
  Serious: Yes (Other)
  Sender: FDA-Public Use
  Company Number: PHHY2011IN81444

PATIENT
  Age: 26 Year
  Sex: Male

DRUGS (1)
  1. ISONIAZID [Suspect]
     Indication: TUBERCULOSIS
     Dosage: 600 MG, UNK

REACTIONS (3)
  - STATUS EPILEPTICUS [None]
  - NEUROTOXICITY [None]
  - CONVULSION [None]
